FAERS Safety Report 5479041-1 (Version None)
Quarter: 2007Q4

REPORT INFORMATION
  Report Type: 
  Country: None (occurrence: None)
  Receive Date: 20071006
  Receipt Date: 20070924
  Transmission Date: 20080405
  Serious: Yes (Other)
  Sender: FDA-Public Use
  Company Number: US-PFIZER INC-2007081114

PATIENT
  Sex: Female
  Weight: 54.545 kg

DRUGS (5)
  1. CHANTIX [Suspect]
     Dates: start: 20070910, end: 20070921
  2. SINGULAIR [Concomitant]
  3. ALBUTEROL [Concomitant]
     Route: 055
  4. ADVAIR DISKUS 100/50 [Concomitant]
  5. CLARINEX [Concomitant]

REACTIONS (16)
  - BACK PAIN [None]
  - BEDRIDDEN [None]
  - COUGH [None]
  - DIARRHOEA [None]
  - DYSGEUSIA [None]
  - FLATULENCE [None]
  - HEADACHE [None]
  - ILL-DEFINED DISORDER [None]
  - LOWER RESPIRATORY TRACT INFECTION [None]
  - MALAISE [None]
  - MOUTH ULCERATION [None]
  - MUSCLE FATIGUE [None]
  - MYALGIA [None]
  - NAUSEA [None]
  - PYREXIA [None]
  - SWELLING [None]
